FAERS Safety Report 16656840 (Version 1)
Quarter: 2019Q3

REPORT INFORMATION
  Report Type: Report from Study
  Country: US (occurrence: US)
  Receive Date: 20190801
  Receipt Date: 20190801
  Transmission Date: 20191004
  Serious: Yes (Hospitalization)
  Sender: FDA-Public Use
  Company Number: US-GILEAD-2019-0421232

PATIENT
  Age: 56 Year
  Sex: Male

DRUGS (27)
  1. CARVEDILOL. [Concomitant]
     Active Substance: CARVEDILOL
  2. LOVAZA [Concomitant]
     Active Substance: OMEGA-3-ACID ETHYL ESTERS
  3. NOXAFIL [Concomitant]
     Active Substance: POSACONAZOLE
  4. PREDNISONE. [Concomitant]
     Active Substance: PREDNISONE
  5. VITAMIN D [COLECALCIFEROL] [Concomitant]
     Active Substance: CHOLECALCIFEROL
  6. ZENPEP [Concomitant]
     Active Substance: PANCRELIPASE AMYLASE\PANCRELIPASE LIPASE\PANCRELIPASE PROTEASE
  7. AZTREONAM LYSINE [Suspect]
     Active Substance: AZTREONAM LYSINE
     Indication: CYSTIC FIBROSIS
     Dosage: 75 MG, TID; ALTERNATE WITH COLISTIN
     Route: 055
     Dates: start: 20180515
  8. CALCIUM [Concomitant]
     Active Substance: CALCIUM
  9. CRESTOR [Concomitant]
     Active Substance: ROSUVASTATIN CALCIUM
  10. LANTUS [Concomitant]
     Active Substance: INSULIN GLARGINE
  11. MELATONIN [Concomitant]
     Active Substance: MELATONIN
  12. OMEPRAZOLE. [Concomitant]
     Active Substance: OMEPRAZOLE
  13. PROAIR HFA [Concomitant]
     Active Substance: ALBUTEROL SULFATE
  14. STERILE WATER [Concomitant]
     Active Substance: WATER
  15. BACTRIM [Concomitant]
     Active Substance: SULFAMETHOXAZOLE\TRIMETHOPRIM
  16. COLISTIMETHATE SODIUM. [Concomitant]
     Active Substance: COLISTIMETHATE SODIUM
  17. DOCUSATE [Concomitant]
     Active Substance: DOCUSATE
  18. VITAMIN B12 [Concomitant]
     Active Substance: CYANOCOBALAMIN
  19. CLONIDINE. [Concomitant]
     Active Substance: CLONIDINE
  20. NOVOLOG [Concomitant]
     Active Substance: INSULIN ASPART
  21. AZITHROMYCIN ANHYDROUS. [Concomitant]
     Active Substance: AZITHROMYCIN ANHYDROUS
  22. BIOTIN [Concomitant]
     Active Substance: BIOTIN
  23. KALYDECO [Concomitant]
     Active Substance: IVACAFTOR
  24. MYCOPHENOLATE [Concomitant]
     Active Substance: MYCOPHENOLIC ACID
  25. MAG OXIDE [Concomitant]
     Active Substance: MAGNESIUM OXIDE
  26. VALCYTE [Concomitant]
     Active Substance: VALGANCICLOVIR HYDROCHLORIDE
  27. COLISTIN [Concomitant]
     Active Substance: COLISTIN

REACTIONS (1)
  - Skin lesion [Unknown]
